FAERS Safety Report 12552315 (Version 1)
Quarter: 2016Q3

REPORT INFORMATION
  Report Type: Spontaneous
  Country: US (occurrence: US)
  Receive Date: 20160713
  Receipt Date: 20160713
  Transmission Date: 20161109
  Serious: No
  Sender: FDA-Public Use
  Company Number: US-GLAXOSMITHKLINE-US2016GSK093721

PATIENT
  Sex: Female
  Weight: 75.28 kg

DRUGS (2)
  1. BECONASE AQUOSUM NASAL SPRAY [Suspect]
     Active Substance: BECLOMETHASONE DIPROPIONATE MONOHYDRATE
     Dosage: UNK
     Dates: start: 20041015
  2. ADVAIR DISKUS [Suspect]
     Active Substance: FLUTICASONE PROPIONATE\SALMETEROL XINAFOATE

REACTIONS (3)
  - Wheezing [Unknown]
  - Malaise [Unknown]
  - Chronic obstructive pulmonary disease [Unknown]
